FAERS Safety Report 9433541 (Version 1)
Quarter: 2013Q3

REPORT INFORMATION
  Report Type: Spontaneous
  Country: US (occurrence: US)
  Receive Date: 20130731
  Receipt Date: 20130731
  Transmission Date: 20140515
  Serious: Yes (Disabling, Other)
  Sender: FDA-Public Use
  Company Number: US-009507513-1307USA013622

PATIENT
  Sex: Female

DRUGS (3)
  1. FOSAMAX [Suspect]
     Dosage: UNK
     Route: 048
  2. RECLAST [Suspect]
  3. ACTONEL [Suspect]

REACTIONS (2)
  - Hip fracture [Not Recovered/Not Resolved]
  - Low turnover osteopathy [Not Recovered/Not Resolved]
